FAERS Safety Report 20737904 (Version 1)
Quarter: 2022Q2

REPORT INFORMATION
  Report Type: Spontaneous
  Country: TH (occurrence: TH)
  Receive Date: 20220422
  Receipt Date: 20220422
  Transmission Date: 20220720
  Serious: Yes (Life-Threatening, Hospitalization, Other)
  Sender: FDA-Public Use
  Company Number: TH-QUAGEN-2022QUALIT00024

PATIENT
  Age: 32 Year
  Sex: Male
  Weight: 49 kg

DRUGS (4)
  1. LIDOCAINE [Suspect]
     Active Substance: LIDOCAINE
     Dosage: 2% LIDOCAINE 60ML
     Route: 058
  2. LIDOCAINE [Suspect]
     Active Substance: LIDOCAINE
     Route: 065
  3. EPINEPHRINE [Suspect]
     Active Substance: EPINEPHRINE
     Indication: Product used for unknown indication
     Dosage: 500ML
     Route: 058
  4. CALCIUM CHLORIDE\POTASSIUM CHLORIDE\SODIUM LACTATE [Concomitant]
     Active Substance: CALCIUM CHLORIDE\POTASSIUM CHLORIDE\SODIUM LACTATE
     Route: 058

REACTIONS (2)
  - Local anaesthetic systemic toxicity [Recovering/Resolving]
  - Overdose [Unknown]
